FAERS Safety Report 5123778-0 (Version None)
Quarter: 2006Q3

REPORT INFORMATION
  Report Type: 
  Country: None (occurrence: None)
  Receive Date: 20060801
  Receipt Date: 20050816
  Transmission Date: 20061208
  Serious: Yes (Hospitalization)
  Sender: FDA-Public Use
  Company Number: DSA_70695-2005

PATIENT
  Age: 24 Year
  Sex: Female

DRUGS (4)
  1. AZATHIOPRINE [Suspect]
     Indication: BEHCET'S SYNDROME
     Dosage: 100 MG DAILY
     Dates: start: 20050224
  2. ENBREL [Suspect]
     Indication: BEHCET'S SYNDROME
     Dosage: 25 MG 2XWK SC
     Route: 058
     Dates: start: 20050327, end: 20050718
  3. PREDNISOLONE [Suspect]
     Indication: BEHCET'S SYNDROME
     Dosage: 30 MG QDAY
     Dates: start: 20050220
  4. COLCHICINE [Concomitant]

REACTIONS (1)
  - PULMONARY TUBERCULOSIS [None]
